FAERS Safety Report 18754972 (Version 1)
Quarter: 2021Q1

REPORT INFORMATION
  Report Type: Spontaneous
  Country: CH (occurrence: CH)
  Receive Date: 20210119
  Receipt Date: 20210119
  Transmission Date: 20210419
  Serious: Yes (Life-Threatening, Disabling, Other)
  Sender: FDA-Public Use
  Company Number: CH-CHEPLA-C20203641

PATIENT
  Age: 34 Year
  Sex: Female

DRUGS (51)
  1. CEFEPIME [Suspect]
     Active Substance: CEFEPIME HYDROCHLORIDE
     Dosage: 2 G 1X / 8H 06/11 / 2020? 08/11/2020
     Dates: start: 20201106, end: 20201108
  2. VANCOMYCINE [Suspect]
     Active Substance: VANCOMYCIN
     Dosage: 1000 MG 1X / 12H 09/10 / 2020? 11/10/20201
     Dates: start: 20201009, end: 20201011
  3. TIENAM [Suspect]
     Active Substance: CILASTATIN SODIUM\IMIPENEM
     Dosage: 500 MG1X / 6H 17/10 / 2020? 21/10/2020
     Dates: start: 20201017, end: 20201021
  4. PREGABALIN. [Concomitant]
     Active Substance: PREGABALIN
     Dates: start: 20201104
  5. VALGANCICLOVIR. [Concomitant]
     Active Substance: VALGANCICLOVIR
     Dates: start: 20201030
  6. GANCICLOVIR. [Suspect]
     Active Substance: GANCICLOVIR
     Dosage: 300 MG, (5.164 MG/KG) EVERY 24 HOUR
     Dates: start: 202011, end: 20201204
  7. VANCOMYCINE [Suspect]
     Active Substance: VANCOMYCIN
     Dosage: 1500 MG 1X / 12H 11/10 / 2020? 17/10/2020
     Dates: start: 20201011, end: 20201017
  8. OSPEN [Suspect]
     Active Substance: PENICILLIN V
     Dosage: 1 MIOIU 1X / 24H 27/10 / 2020? 05/11/2020
     Dates: start: 20201027, end: 20201105
  9. FLUCONAZOLE. [Suspect]
     Active Substance: FLUCONAZOLE
     Dosage: 200 MG 1X / 24H IV 02/10 / 20? 20/10/2020
     Dates: start: 20201002, end: 20201020
  10. PROGRAF [Suspect]
     Active Substance: TACROLIMUS
     Dosage: 1.5 MG / 24H IV 05/10 / 2020? 15/10/2020
     Route: 041
     Dates: start: 20201005, end: 20201015
  11. QUETIAPINE. [Suspect]
     Active Substance: QUETIAPINE
     Indication: AGITATION
     Dosage: 12.5 MG, THRICE DAILY (MAX) ON HAND
     Dates: start: 202011
  12. WELLVONE [Suspect]
     Active Substance: ATOVAQUONE
     Dosage: 1500 MG, EVERY 24 HOUR
     Dates: start: 202011
  13. FENTANYL. [Concomitant]
     Active Substance: FENTANYL
     Dates: start: 20201010, end: 20201028
  14. LASIX [Suspect]
     Active Substance: FUROSEMIDE
     Dosage: IN TOTAL
     Dates: start: 20201011, end: 20201011
  15. CEFEPIME [Suspect]
     Active Substance: CEFEPIME HYDROCHLORIDE
     Dosage: 1X / 8H 08/10 / 2020? 17/10/2020
     Dates: start: 20201008, end: 20201017
  16. PROGRAF [Suspect]
     Active Substance: TACROLIMUS
     Dosage: PROGRAF CAPS 1 MG 2X / D FROM 10/29/2020 ? 11/02/2020
     Route: 048
     Dates: start: 20201029, end: 20201102
  17. PROGRAF [Suspect]
     Active Substance: TACROLIMUS
     Dosage: 2.5 MG 2X / D FROM 11/05/2020
     Route: 048
     Dates: start: 20201105
  18. PERFALGAN [Suspect]
     Active Substance: ACETAMINOPHEN
     Dosage: IF NECESSARY
     Route: 041
     Dates: start: 20201027
  19. BUPRENORPHINE. [Concomitant]
     Active Substance: BUPRENORPHINE
  20. SOLU?MEDROL [Concomitant]
     Active Substance: METHYLPREDNISOLONE SODIUM SUCCINATE
     Dosage: 1 MG/KG, UNKNOWN FREQ.
     Dates: start: 20201020
  21. DISTRANEURIN [Suspect]
     Active Substance: CLOMETHIAZOLE
     Route: 048
     Dates: start: 20201102
  22. BACTRIM [Suspect]
     Active Substance: SULFAMETHOXAZOLE\TRIMETHOPRIM
     Dosage: BACTRIM INJECT 160 MG 3X / WEEK IV
     Route: 041
     Dates: start: 20201006, end: 20201019
  23. TIENAM [Suspect]
     Active Substance: CILASTATIN SODIUM\IMIPENEM
     Dosage: 500 MG 1X / 6H
     Dates: start: 20201108
  24. NEXIUM MUPS [Suspect]
     Active Substance: ESOMEPRAZOLE
     Dates: start: 20201021
  25. ACICLOVIR [Concomitant]
     Active Substance: ACYCLOVIR
     Dates: start: 20201001, end: 20201019
  26. LASIX [Suspect]
     Active Substance: FUROSEMIDE
     Dates: start: 20201012, end: 20201016
  27. PERFALGAN [Suspect]
     Active Substance: ACETAMINOPHEN
     Dosage: 1GR PO 4X / D FROM 09/24/06/10
     Route: 048
     Dates: start: 20200924, end: 20201006
  28. EMEND [Suspect]
     Active Substance: APREPITANT
     Dosage: 80 MG 1X / 72H PO FROM 30/09 / 20?19 / 10/2020
     Route: 048
     Dates: start: 20200929, end: 20201019
  29. INDERAL [Suspect]
     Active Substance: PROPRANOLOL HYDROCHLORIDE
     Dates: start: 202011, end: 20201204
  30. LEVOFLOXACINE [Suspect]
     Active Substance: LEVOFLOXACIN
     Dosage: 500 MG, UNKNOWN FREQ.
     Dates: start: 20201121, end: 20201121
  31. ANIDULAFUNGINE [Concomitant]
     Active Substance: ANIDULAFUNGIN
     Dates: start: 20201027
  32. NEXIUM [Suspect]
     Active Substance: ESOMEPRAZOLE MAGNESIUM
     Route: 041
     Dates: start: 20201006, end: 20201020
  33. PROGRAF [Suspect]
     Active Substance: TACROLIMUS
     Dosage: 2MG 2X / D 02?05 / 11/20
     Route: 048
     Dates: start: 20201102, end: 20201105
  34. ONDANSETRON [Suspect]
     Active Substance: ONDANSETRON
     Route: 041
     Dates: start: 20201008, end: 20201019
  35. CLARITHROMYCIN. [Suspect]
     Active Substance: CLARITHROMYCIN
  36. BACTRIM [Suspect]
     Active Substance: SULFAMETHOXAZOLE\TRIMETHOPRIM
     Dosage: 160 MG  3X / WEEK PER OS
     Route: 048
     Dates: start: 20201019, end: 20201027
  37. TIENAM [Suspect]
     Active Substance: CILASTATIN SODIUM\IMIPENEM
     Dates: start: 20201023, end: 20201026
  38. NYSTATINE (NYSTATIN) [Suspect]
     Active Substance: NYSTATIN
     Dosage: 200,000 IU 4X / D BUCCAL
     Dates: start: 20200929
  39. PROGRAF [Suspect]
     Active Substance: TACROLIMUS
     Dosage: 1.3 MG / 24H 15/10 / 2020?26 / 10/2020
     Route: 041
     Dates: start: 20201015, end: 20201026
  40. PROGRAF [Suspect]
     Active Substance: TACROLIMUS
     Dosage: 1.0 MG / 24H FROM 26/10 / 2020? 29 / 10/2020
     Route: 041
     Dates: start: 20201026, end: 20201029
  41. HEPARIN [Concomitant]
     Active Substance: HEPARIN SODIUM
     Dates: start: 20201009
  42. NOVORAPID [Concomitant]
     Active Substance: INSULIN ASPART
     Dosage: INJECT 2 IU / H IV 09/10/2020
     Dates: start: 20201009
  43. PASPERTIN [ METOCLOPRAMIDE\POLIDOCANOL] [Concomitant]
     Active Substance: METOCLOPRAMIDE\POLIDOCANOL
     Dates: start: 20201008
  44. PERFALGAN [Suspect]
     Active Substance: ACETAMINOPHEN
     Dosage: IF NECESSARY
     Route: 048
     Dates: start: 20201006, end: 20201027
  45. EMEND [Suspect]
     Active Substance: APREPITANT
     Dosage: 125 MG 1X / 72H FROM 09/28/2020 ? 10/19/2020
     Route: 048
     Dates: start: 20200928, end: 20201019
  46. EMEND [Suspect]
     Active Substance: APREPITANT
     Dosage: 80 MG 1X / 72H PO FROM 09/29/20?19/10/2020
     Route: 048
     Dates: start: 20200929, end: 20201019
  47. AZACTAM [Suspect]
     Active Substance: AZTREONAM
     Dosage: 2 G, AS NEEDED EVERY 6 HOUR (ON HAND)
     Dates: start: 202011
  48. LEVOFLOXACINE [Suspect]
     Active Substance: LEVOFLOXACIN
     Dosage: 500 MG, UNKNOWN FREQ.
     Dates: start: 20201201, end: 20201201
  49. LEVOFLOXACINE [Suspect]
     Active Substance: LEVOFLOXACIN
     Dosage: 500 MG, UNKNOWN FREQ.
     Dates: start: 20201205
  50. URSOFALK [Concomitant]
     Active Substance: URSODIOL
     Dates: start: 20201007
  51. TIORFAN [Concomitant]
     Active Substance: RACECADOTRIL
     Dates: start: 20201010, end: 20201015

REACTIONS (8)
  - Graft versus host disease [Unknown]
  - Dermatitis bullous [Recovered/Resolved]
  - Toxic epidermal necrolysis [Recovered/Resolved]
  - Toxic epidermal necrolysis [Recovering/Resolving]
  - Rash [Unknown]
  - Drug eruption [Unknown]
  - Herpes virus infection [Unknown]
  - Liver injury [Unknown]

NARRATIVE: CASE EVENT DATE: 20201109
